FAERS Safety Report 4482625-0 (Version None)
Quarter: 2004Q3

REPORT INFORMATION
  Report Type: 
  Country: None (occurrence: None)
  Receive Date: 20040921
  Receipt Date: 20040612
  Transmission Date: 20050211
  Serious: Yes (Hospitalization)
  Sender: FDA-Public Use
  Company Number: 163-20785-04060470

PATIENT
  Age: 76 Year
  Sex: Male
  Weight: 70.4 kg

DRUGS (3)
  1. THALOMID [Suspect]
     Indication: NON-SMALL CELL LUNG CANCER STAGE III
     Dosage: 200 TO 400MG, QD, ORAL
     Route: 048
     Dates: start: 20040429, end: 20040517
  2. CARBOPLATIN [Suspect]
     Indication: NON-SMALL CELL LUNG CANCER STAGE III
     Dosage: 426 MG (AUC = 6), DAY 1 EVERY 21 DAYS, INTRAVENOUS
     Route: 042
     Dates: start: 20040429, end: 20040429
  3. PACLITAXEL [Suspect]
     Indication: NON-SMALL CELL LUNG CANCER STAGE III
     Dosage: 421 MG (225 MG/M2), DAY 1 EVERY 21 DAYS, INTRAVENOUS
     Route: 042
     Dates: start: 20040429, end: 20040429

REACTIONS (2)
  - DYSPNOEA [None]
  - PLEURAL EFFUSION [None]
